FAERS Safety Report 25622004 (Version 1)
Quarter: 2025Q3

REPORT INFORMATION
  Report Type: Spontaneous
  Country: EU (occurrence: EU)
  Receive Date: 20250730
  Receipt Date: 20250730
  Transmission Date: 20251021
  Serious: Yes (Other)
  Sender: NOVARTIS
  Company Number: EU-002147023-NVSC2025FR118793

PATIENT
  Age: 2 Year
  Sex: Male

DRUGS (2)
  1. ILARIS [Suspect]
     Active Substance: CANAKINUMAB
     Indication: Product used for unknown indication
     Dosage: 150 MG, QD, AMPOULE
     Route: 065
     Dates: end: 20250523
  2. ILARIS [Suspect]
     Active Substance: CANAKINUMAB
     Dosage: 150 MG, QD, AMPOULE
     Route: 065
     Dates: end: 20250523

REACTIONS (3)
  - Leukaemia [Unknown]
  - Product supply issue [Unknown]
  - Off label use [Unknown]
